FAERS Safety Report 17591073 (Version 1)
Quarter: 2020Q1

REPORT INFORMATION
  Report Type: Spontaneous
  Country: US (occurrence: US)
  Receive Date: 20200327
  Receipt Date: 20200327
  Transmission Date: 20200409
  Serious: No
  Sender: FDA-Public Use
  Company Number: US-PFIZER INC-2020122546

PATIENT
  Age: 86 Year
  Sex: Female
  Weight: 68 kg

DRUGS (2)
  1. LATANOPROST. [Suspect]
     Active Substance: LATANOPROST
     Indication: GLAUCOMA
     Dosage: 2 GTT, 1X/DAY [0.005% 125MCG, 1 DROP IN EACH EYE IN THE EVENING]
     Route: 047
  2. COMBIGAN [Suspect]
     Active Substance: BRIMONIDINE TARTRATE\TIMOLOL MALEATE
     Indication: GLAUCOMA
     Dosage: 2 GTT, 2X/DAY [5 ML 0.2%/.05%, 1 DROP IN EACH EYE TWICE A DAY]
     Route: 047

REACTIONS (7)
  - Foreign body in eye [Not Recovered/Not Resolved]
  - Eye disorder [Not Recovered/Not Resolved]
  - Intentional dose omission [Unknown]
  - Eye irritation [Unknown]
  - Lacrimation increased [Unknown]
  - Ocular hyperaemia [Not Recovered/Not Resolved]
  - Eyelid disorder [Unknown]

NARRATIVE: CASE EVENT DATE: 2019
